FAERS Safety Report 7816844-X (Version None)
Quarter: 2011Q4

REPORT INFORMATION
  Report Type: 
  Country: None (occurrence: None)
  Receive Date: 20111013
  Receipt Date: 20110928
  Transmission Date: 20120403
  Serious: Yes (Death)
  Sender: FDA-Public Use
  Company Number: 2011SGN00220

PATIENT
  Age: 75 Year
  Sex: Male

DRUGS (1)
  1. ADCETRIS (BRENTUXIMAB VEDOTN) INJECTION [Suspect]
     Indication: HODGKIN'S DISEASE
     Dosage: 130 MG, INTRAVENOUS
     Route: 042
     Dates: start: 20110915, end: 20110915

REACTIONS (3)
  - RESPIRATORY FAILURE [None]
  - LYMPHOMA [None]
  - NEOPLASM PROGRESSION [None]
